FAERS Safety Report 7042213-9 (Version None)
Quarter: 2010Q3

REPORT INFORMATION
  Report Type: 
  Country: None (occurrence: None)
  Receive Date: 20100929
  Receipt Date: 20100806
  Transmission Date: 20110219
  Serious: No
  Sender: FDA-Public Use
  Company Number: US-WYE-H16799810

PATIENT
  Age: 60 Year
  Sex: Female
  Weight: 59.02 kg

DRUGS (4)
  1. PRISTIQ [Suspect]
     Indication: HOT FLUSH
     Dosage: 50 MG 1X PER 1 DAY
     Dates: start: 20100101, end: 20100701
  2. PRISTIQ [Suspect]
     Indication: HYPERHIDROSIS
     Dosage: 50 MG 1X PER 1 DAY
     Dates: start: 20100101, end: 20100701
  3. PLAVIX [Concomitant]
  4. TENORMIN [Concomitant]

REACTIONS (10)
  - ANXIETY [None]
  - ASTHENIA [None]
  - CONSTIPATION [None]
  - DRUG INEFFECTIVE [None]
  - DRUG WITHDRAWAL SYNDROME [None]
  - EXPIRED DRUG ADMINISTERED [None]
  - HOT FLUSH [None]
  - HYPERHIDROSIS [None]
  - INSOMNIA [None]
  - WEIGHT INCREASED [None]
